FAERS Safety Report 15368098 (Version 1)
Quarter: 2018Q4

REPORT INFORMATION
  Report Type: Spontaneous
  Country: US (occurrence: US)
  Receive Date: 20180910
  Receipt Date: 20180910
  Transmission Date: 20190204
  Serious: Yes (Other)
  Sender: FDA-Public Use
  Company Number: US-PFIZER INC-2018246829

PATIENT
  Age: 84 Year
  Sex: Female

DRUGS (5)
  1. EPLERENONE. [Suspect]
     Active Substance: EPLERENONE
     Indication: OEDEMA
     Dosage: 25 MG, ONCE DAILY
  2. LASIX [Suspect]
     Active Substance: FUROSEMIDE
     Dosage: 50 MG, UNK
  3. LASIX [Suspect]
     Active Substance: FUROSEMIDE
     Indication: OEDEMA
     Dosage: 25 MG, ONCE DAILY
  4. SPIRONOLACTONE. [Suspect]
     Active Substance: SPIRONOLACTONE
     Indication: OEDEMA
     Dosage: 150 MG, DAILY
  5. TRIAMTERENE + HCTZ [Suspect]
     Active Substance: HYDROCHLOROTHIAZIDE\TRIAMTERENE
     Indication: OEDEMA
     Dosage: 1 DF, ONCE DAILY

REACTIONS (3)
  - Cardiac failure congestive [Recovered/Resolved]
  - Drug ineffective for unapproved indication [Unknown]
  - Weight increased [Unknown]
